FAERS Safety Report 6977542-8 (Version None)
Quarter: 2010Q3

REPORT INFORMATION
  Report Type: 
  Country: None (occurrence: None)
  Receive Date: 20100911
  Receipt Date: 20100809
  Transmission Date: 20110219
  Serious: Yes (Other)
  Sender: FDA-Public Use
  Company Number: PHHY2010US07229

PATIENT
  Sex: Female

DRUGS (8)
  1. ZELNORM [Suspect]
     Indication: IRRITABLE BOWEL SYNDROME
     Dosage: 6 MG
     Route: 048
     Dates: start: 20010101
  2. ZELNORM [Suspect]
     Dosage: UNK
     Route: 048
     Dates: start: 20020101
  3. EFFEXOR [Concomitant]
     Dosage: UNK
  4. SEROQUEL [Concomitant]
     Dosage: UNK
  5. OMEPRAZOLE [Concomitant]
  6. ATENOLOL [Concomitant]
     Dosage: UNK
  7. FOCALIN [Concomitant]
  8. FLEXERIL [Concomitant]

REACTIONS (6)
  - CARDIAC ABLATION [None]
  - CEREBROVASCULAR ACCIDENT [None]
  - DIZZINESS [None]
  - PALPITATIONS [None]
  - PRESYNCOPE [None]
  - SUPRAVENTRICULAR TACHYCARDIA [None]
